FAERS Safety Report 10997572 (Version 20)
Quarter: 2015Q3

REPORT INFORMATION
  Report Type: Spontaneous
  Country: US (occurrence: US)
  Receive Date: 20150408
  Receipt Date: 20150911
  Transmission Date: 20151125
  Serious: Yes (Hospitalization)
  Sender: FDA-Public Use
  Company Number: US-UNITED THERAPEUTICS-UNT-2015-003780

PATIENT
  Age: 46 Year
  Sex: Female
  Weight: 68.27 kg

DRUGS (8)
  1. LETAIRIS [Suspect]
     Active Substance: AMBRISENTAN
     Indication: PULMONARY HYPERTENSION
     Dosage: 5 MG, QD
     Dates: start: 20110209
  2. LETAIRIS [Suspect]
     Active Substance: AMBRISENTAN
     Dosage: 10 MG, QD
     Route: 042
     Dates: start: 20130404
  3. LETAIRIS [Suspect]
     Active Substance: AMBRISENTAN
     Dosage: UNK
  4. REVATIO [Concomitant]
     Active Substance: SILDENAFIL CITRATE
     Indication: PRODUCT USED FOR UNKNOWN INDICATION
  5. REMODULIN [Suspect]
     Active Substance: TREPROSTINIL
     Dosage: 0.092 ?G/KG, CONTINUING
     Route: 041
     Dates: start: 20140806
  6. REMODULIN [Suspect]
     Active Substance: TREPROSTINIL
     Dosage: 0.092 ?G/KG, CONTINUING
     Route: 041
     Dates: start: 20140713
  7. REMODULIN [Suspect]
     Active Substance: TREPROSTINIL
     Indication: PULMONARY HYPERTENSION
     Dosage: 0.092 ?G/KG, CONTINUING
     Route: 041
     Dates: start: 20131211
  8. REMODULIN [Suspect]
     Active Substance: TREPROSTINIL
     Dosage: 0.022 ?G/KG, CONTINUING
     Route: 041

REACTIONS (32)
  - Drug hypersensitivity [Unknown]
  - Urticaria [Unknown]
  - Injection site rash [Unknown]
  - Nausea [Unknown]
  - Injection site erythema [Unknown]
  - Drug effect increased [Unknown]
  - Device dislocation [Unknown]
  - Fatigue [Unknown]
  - Injection site nodule [Unknown]
  - Vomiting [Unknown]
  - Injection site pain [Unknown]
  - Renal failure [Unknown]
  - Blindness [Unknown]
  - Pruritus [Unknown]
  - Dyspnoea [Unknown]
  - Injection site irritation [Unknown]
  - Injection site abscess [Unknown]
  - Injection site discharge [Unknown]
  - Catheter site haemorrhage [Unknown]
  - Diarrhoea [Unknown]
  - Unevaluable event [Unknown]
  - Device leakage [Unknown]
  - Pancreatitis [Unknown]
  - Dizziness [Unknown]
  - Pulmonary arterial hypertension [Unknown]
  - Thrombosis in device [Unknown]
  - Somnolence [Unknown]
  - Phlebitis [Unknown]
  - Injection site oedema [Unknown]
  - Injection site warmth [Unknown]
  - Drug dose omission [Unknown]
  - Device occlusion [Unknown]

NARRATIVE: CASE EVENT DATE: 2015
